FAERS Safety Report 6711253-9 (Version None)
Quarter: 2010Q2

REPORT INFORMATION
  Report Type: 
  Country: None (occurrence: None)
  Receive Date: 20100504
  Receipt Date: 20100504
  Transmission Date: 20101027
  Serious: Yes (Hospitalization)
  Sender: FDA-Public Use
  Company Number: None

PATIENT

DRUGS (1)
  1. DIVALPROEX SODIUM [Suspect]
     Indication: DEPRESSION
     Dosage: 1000 MG EVERY DAY PO
     Route: 048
     Dates: start: 20100225, end: 20100416

REACTIONS (5)
  - HEPATOTOXICITY [None]
  - HYPOTENSION [None]
  - JAUNDICE [None]
  - LIVER FUNCTION TEST ABNORMAL [None]
  - PANCREATITIS [None]
